FAERS Safety Report 15438317 (Version 3)
Quarter: 2018Q4

REPORT INFORMATION
  Report Type: Spontaneous
  Country: US (occurrence: US)
  Receive Date: 20180928
  Receipt Date: 20181015
  Transmission Date: 20190204
  Serious: No
  Sender: FDA-Public Use
  Company Number: US-JNJFOC-20180843421

PATIENT
  Sex: Female

DRUGS (2)
  1. WOMENS ROGAINE UNSCENTED [Suspect]
     Active Substance: MINOXIDIL
     Route: 061
  2. WOMENS ROGAINE UNSCENTED [Suspect]
     Active Substance: MINOXIDIL
     Indication: ALOPECIA
     Dosage: DOSE : HALF A CAPFULL
     Route: 061

REACTIONS (4)
  - Product formulation issue [Unknown]
  - Wrong technique in product usage process [Unknown]
  - Product packaging issue [Unknown]
  - Incorrect dose administered [Unknown]
